FAERS Safety Report 4980146-X (Version None)
Quarter: 2006Q2

REPORT INFORMATION
  Report Type: 
  Country: None (occurrence: None)
  Receive Date: 20060421
  Receipt Date: 20060106
  Transmission Date: 20061013
  Serious: Yes (Other)
  Sender: FDA-Public Use
  Company Number: US-MERCK-0601USA01009

PATIENT
  Age: 51 Year
  Sex: Male
  Weight: 100 kg

DRUGS (20)
  1. VIOXX [Suspect]
     Indication: ANALGESIC INTERVENTION SUPPORTIVE THERAPY
     Route: 048
     Dates: start: 20000101, end: 20040901
  2. VIOXX [Suspect]
     Route: 048
  3. ENDOCET [Concomitant]
     Route: 065
  4. ROXICET [Concomitant]
     Route: 065
  5. PLAVIX [Concomitant]
     Route: 065
  6. FLUOXETINE [Concomitant]
     Route: 065
  7. TRIMOX [Concomitant]
     Route: 065
  8. ABILIFY [Concomitant]
     Route: 065
  9. ZYPREXA [Concomitant]
     Route: 065
  10. BUSPIRONE HYDROCHLORIDE [Concomitant]
     Route: 065
  11. ZITHROMAX [Concomitant]
     Route: 065
  12. CLOBETASOL PROPIONATE [Concomitant]
     Route: 065
  13. CODEINE [Concomitant]
     Route: 065
  14. METFORMIN [Concomitant]
     Route: 065
  15. PRILOSEC [Concomitant]
     Route: 048
  16. LIPITOR [Concomitant]
     Route: 065
  17. MOTRIN [Concomitant]
     Route: 065
  18. LODINE [Concomitant]
     Route: 065
  19. CELEBREX [Concomitant]
     Route: 065
  20. NAPROXEN [Concomitant]
     Route: 065

REACTIONS (12)
  - ABDOMINAL DISTENSION [None]
  - ABDOMINAL PAIN [None]
  - ANXIETY [None]
  - CARDIOVASCULAR DISORDER [None]
  - CARDIOVASCULAR INSUFFICIENCY [None]
  - CONSTIPATION [None]
  - DIABETES MELLITUS [None]
  - FLATULENCE [None]
  - GALLBLADDER DISORDER [None]
  - HAEMATOCHEZIA [None]
  - HAEMORRHOIDS [None]
  - MYOCARDIAL INFARCTION [None]
